FAERS Safety Report 22088696 (Version 1)
Quarter: 2023Q1

REPORT INFORMATION
  Report Type: Spontaneous
  Country: US (occurrence: None)
  Receive Date: 20230310
  Receipt Date: 20230310
  Transmission Date: 20230418
  Serious: Yes (Other)
  Sender: FDA-Public Use
  Company Number: None

PATIENT
  Age: 34 Year
  Sex: Female
  Weight: 67.13 kg

DRUGS (1)
  1. SERTRALINE [Suspect]
     Active Substance: SERTRALINE HYDROCHLORIDE
     Indication: Perinatal depression
     Dosage: FREQUENCY : DAILY;?
     Route: 048
     Dates: start: 20230207, end: 20230310

REACTIONS (6)
  - Panic attack [None]
  - Tremor [None]
  - Myalgia [None]
  - Headache [None]
  - Product substitution issue [None]
  - Therapy non-responder [None]

NARRATIVE: CASE EVENT DATE: 20230310
